FAERS Safety Report 7763013-8 (Version None)
Quarter: 2011Q3

REPORT INFORMATION
  Report Type: 
  Country: None (occurrence: None)
  Receive Date: 20110920
  Receipt Date: 20110908
  Transmission Date: 20111222
  Serious: Yes (Hospitalization)
  Sender: FDA-Public Use
  Company Number: GR-NOVOPROD-332174

PATIENT

DRUGS (4)
  1. PROTHURIL [Concomitant]
     Indication: HYPERTHYROIDISM
  2. CECLOR [Concomitant]
     Dosage: 750 MG, QD
  3. MIXTARD HUMAN 70/30 [Suspect]
     Indication: DIABETES MELLITUS
     Dosage: 40 IU MORNING AND NIGHT
     Dates: start: 19970101
  4. CETIRIZINE HCL [Concomitant]
     Indication: HYPERSENSITIVITY

REACTIONS (2)
  - PYODERMA [None]
  - BLOOD GLUCOSE INCREASED [None]
